FAERS Safety Report 9818461 (Version 1)
Quarter: 2014Q1

REPORT INFORMATION
  Report Type: Spontaneous
  Country: US (occurrence: US)
  Receive Date: 20140115
  Receipt Date: 20140115
  Transmission Date: 20141002
  Serious: No
  Sender: FDA-Public Use
  Company Number: US-PFIZER INC-2014011858

PATIENT
  Age: 51 Year
  Sex: Female
  Weight: 113 kg

DRUGS (2)
  1. LYRICA [Suspect]
     Indication: FIBROMYALGIA
     Dosage: 150 MG, 2X/DAY
     Dates: start: 201310
  2. CELEXA [Concomitant]
     Indication: DEPRESSION
     Dosage: 200 MG, DAILY

REACTIONS (1)
  - Weight increased [Unknown]
